FAERS Safety Report 14964079 (Version 2)
Quarter: 2018Q3

REPORT INFORMATION
  Report Type: Spontaneous
  Country: US (occurrence: CA)
  Receive Date: 20180601
  Receipt Date: 20180710
  Transmission Date: 20181010
  Serious: Yes (Hospitalization, Other)
  Sender: FDA-Public Use
  Company Number: US-GLAXOSMITHKLINE-US2018097689

PATIENT
  Age: 80 Year
  Sex: Female

DRUGS (9)
  1. METOPROLOL. [Concomitant]
     Active Substance: METOPROLOL
  2. ASPIRIN (BABY) [Concomitant]
     Active Substance: ASPIRIN
  3. SERETIDE [Suspect]
     Active Substance: FLUTICASONE PROPIONATE\SALMETEROL XINAFOATE
     Indication: CHRONIC OBSTRUCTIVE PULMONARY DISEASE
     Dosage: 1 PUFF(S), BID
     Route: 055
     Dates: start: 1998
  4. LASIX [Concomitant]
     Active Substance: FUROSEMIDE
  5. SERETIDE [Suspect]
     Active Substance: FLUTICASONE PROPIONATE\SALMETEROL XINAFOATE
     Dosage: 1 PUFF(S), BID
     Route: 055
  6. METFORMIN [Concomitant]
     Active Substance: METFORMIN HYDROCHLORIDE
  7. SYNTHROID [Concomitant]
     Active Substance: LEVOTHYROXINE SODIUM
  8. DIFLUCAN [Concomitant]
     Active Substance: FLUCONAZOLE
  9. RAMIPRIL. [Concomitant]
     Active Substance: RAMIPRIL

REACTIONS (9)
  - Foreign body in respiratory tract [Not Recovered/Not Resolved]
  - Dysphagia [Recovered/Resolved]
  - Cardiac disorder [Not Recovered/Not Resolved]
  - Oral candidiasis [Recovered/Resolved]
  - Muscle spasms [Recovered/Resolved]
  - Coronary arterial stent insertion [Unknown]
  - Coronary artery bypass [Unknown]
  - Oral fungal infection [Recovered/Resolved]
  - Cough [Recovering/Resolving]

NARRATIVE: CASE EVENT DATE: 2011
